FAERS Safety Report 16985028 (Version 1)
Quarter: 2019Q4

REPORT INFORMATION
  Report Type: Spontaneous
  Country: ES (occurrence: ES)
  Receive Date: 20191101
  Receipt Date: 20191101
  Transmission Date: 20200122
  Serious: Yes (Hospitalization, Other)
  Sender: FDA-Public Use
  Company Number: ES-AMGEN-ESPSP2019177131

PATIENT
  Age: 62 Year
  Sex: Female

DRUGS (1)
  1. PROLIA [Suspect]
     Active Substance: DENOSUMAB
     Indication: OSTEOPOROTIC FRACTURE
     Dosage: 60 MILLIGRAM
     Route: 065
     Dates: start: 20120606, end: 20151111

REACTIONS (2)
  - Thoracic vertebral fracture [Recovered/Resolved with Sequelae]
  - Multiple fractures [Recovered/Resolved]

NARRATIVE: CASE EVENT DATE: 20160420
